FAERS Safety Report 4284283-7 (Version None)
Quarter: 2004Q1

REPORT INFORMATION
  Report Type: 
  Country: None (occurrence: None)
  Receive Date: 20040202
  Receipt Date: 20040202
  Transmission Date: 20041129
  Serious: Yes (Hospitalization)
  Sender: FDA-Public Use
  Company Number: None

PATIENT
  Sex: Female
  Weight: 78.0187 kg

DRUGS (5)
  1. LIPITOR [Suspect]
     Indication: HYPERCHOLESTEROLAEMIA
     Dosage: 10 MG PO QD
     Route: 048
  2. ASPIRIN [Concomitant]
  3. VITAMIN E [Concomitant]
  4. OSCAL [Concomitant]
  5. TYLENOL PRN [Concomitant]

REACTIONS (3)
  - LIVER FUNCTION TEST ABNORMAL [None]
  - PNEUMONIA [None]
  - RHABDOMYOLYSIS [None]
